FAERS Safety Report 19950799 (Version 1)
Quarter: 2021Q4

REPORT INFORMATION
  Report Type: Other
  Country: US (occurrence: US)
  Receive Date: 20211013
  Receipt Date: 20211013
  Transmission Date: 20220303
  Serious: Yes (Other)
  Sender: FDA-Public Use
  Company Number: US-DEXPHARM-20211706

PATIENT
  Sex: Male

DRUGS (4)
  1. NIVOLUMAB [Interacting]
     Active Substance: NIVOLUMAB
     Indication: Metastatic malignant melanoma
     Dates: start: 201710
  2. OMEPRAZOLE [Interacting]
     Active Substance: OMEPRAZOLE
  3. ATEZOLIZUMAB [Interacting]
     Active Substance: ATEZOLIZUMAB
     Indication: Malignant melanoma
  4. OMEPRAZOLE [Interacting]
     Active Substance: OMEPRAZOLE
     Indication: Nausea

REACTIONS (2)
  - Tubulointerstitial nephritis [Recovered/Resolved]
  - Drug interaction [Recovered/Resolved]
